FAERS Safety Report 13711487 (Version 36)
Quarter: 2023Q1

REPORT INFORMATION
  Report Type: Spontaneous
  Country: CA (occurrence: CA)
  Receive Date: 20170703
  Receipt Date: 20230205
  Transmission Date: 20230418
  Serious: Yes (Other)
  Sender: FDA-Public Use
  Company Number: CA-CELLTRION INC.-2017CA008553

PATIENT

DRUGS (45)
  1. INFLECTRA [Suspect]
     Active Substance: INFLIXIMAB-DYYB
     Indication: Colitis ulcerative
     Dosage: 600 MG, AT 0, 2, 6, THEN EVERY 8 WEEKS
     Route: 042
     Dates: start: 20170616, end: 20180507
  2. INFLECTRA [Suspect]
     Active Substance: INFLIXIMAB-DYYB
     Dosage: INDUCTION DOSES AT WEEK 0, 2 AND 6, THEN EVERY 8 WEEKS
     Route: 042
     Dates: start: 20170616, end: 20180507
  3. INFLECTRA [Suspect]
     Active Substance: INFLIXIMAB-DYYB
     Dosage: 600 MG, AT 0, 2, 6, THEN EVERY 8 WEEKS
     Route: 042
     Dates: start: 20170616
  4. INFLECTRA [Suspect]
     Active Substance: INFLIXIMAB-DYYB
     Dosage: 600 MG, AT 0, 2, 6, THEN EVERY 8 WEEKS
     Route: 042
     Dates: start: 20180119
  5. INFLECTRA [Suspect]
     Active Substance: INFLIXIMAB-DYYB
     Dosage: 600 MG, AT 0, 2, 6, THEN EVERY 8 WEEKS
     Route: 042
     Dates: start: 20180312
  6. INFLECTRA [Suspect]
     Active Substance: INFLIXIMAB-DYYB
     Dosage: 600 MG, AT 0, 2, 6, THEN EVERY 8 WEEKS
     Route: 042
     Dates: start: 20180507
  7. INFLECTRA [Suspect]
     Active Substance: INFLIXIMAB-DYYB
     Dosage: 1100 MG
     Route: 042
     Dates: start: 20180706, end: 20190422
  8. INFLECTRA [Suspect]
     Active Substance: INFLIXIMAB-DYYB
     Dosage: 1100 MG EVERY 8 WEEKS
     Route: 042
     Dates: start: 20180706, end: 20190422
  9. INFLECTRA [Suspect]
     Active Substance: INFLIXIMAB-DYYB
     Dosage: 1100 MG EVERY 8 WEEKS
     Route: 042
     Dates: start: 20180706
  10. INFLECTRA [Suspect]
     Active Substance: INFLIXIMAB-DYYB
     Dosage: 1100 MG EVERY 8 WEEKS
     Route: 042
     Dates: start: 20180907
  11. INFLECTRA [Suspect]
     Active Substance: INFLIXIMAB-DYYB
     Dosage: 1100 MG EVERY 8 WEEKS
     Route: 042
     Dates: start: 20181102
  12. INFLECTRA [Suspect]
     Active Substance: INFLIXIMAB-DYYB
     Dosage: 1100 MG EVERY 8 WEEKS
     Route: 042
     Dates: start: 20181228
  13. INFLECTRA [Suspect]
     Active Substance: INFLIXIMAB-DYYB
     Dosage: 1100 MG EVERY 8 WEEKS
     Route: 042
     Dates: start: 20190222
  14. INFLECTRA [Suspect]
     Active Substance: INFLIXIMAB-DYYB
     Dosage: 1100 MG EVERY 8 WEEKS
     Route: 042
     Dates: start: 20190422
  15. INFLECTRA [Suspect]
     Active Substance: INFLIXIMAB-DYYB
     Dosage: 1200 MG
     Route: 042
     Dates: start: 20190617, end: 20200121
  16. INFLECTRA [Suspect]
     Active Substance: INFLIXIMAB-DYYB
     Dosage: 1200 MG EVERY 8 WEEKS
     Route: 042
     Dates: start: 20190617, end: 20200121
  17. INFLECTRA [Suspect]
     Active Substance: INFLIXIMAB-DYYB
     Dosage: 1200 MG EVERY 8 WEEKS
     Route: 042
     Dates: start: 20190617
  18. INFLECTRA [Suspect]
     Active Substance: INFLIXIMAB-DYYB
     Dosage: 1200 MG EVERY 8 WEEKS
     Route: 042
     Dates: start: 20190812
  19. INFLECTRA [Suspect]
     Active Substance: INFLIXIMAB-DYYB
     Dosage: 1200 MG EVERY 8 WEEKS
     Route: 042
     Dates: start: 20191007
  20. INFLECTRA [Suspect]
     Active Substance: INFLIXIMAB-DYYB
     Dosage: 1200 MG EVERY 8 WEEKS
     Route: 042
     Dates: start: 20191129
  21. INFLECTRA [Suspect]
     Active Substance: INFLIXIMAB-DYYB
     Dosage: 1200 MG EVERY 8 WEEKS
     Route: 042
     Dates: start: 20200121
  22. INFLECTRA [Suspect]
     Active Substance: INFLIXIMAB-DYYB
     Dosage: 1100 MG EVERY 7 WEEKS
     Route: 042
     Dates: start: 20200319, end: 20200806
  23. INFLECTRA [Suspect]
     Active Substance: INFLIXIMAB-DYYB
     Dosage: 1100 MG EVERY 7 WEEKS
     Route: 042
     Dates: start: 20200430
  24. INFLECTRA [Suspect]
     Active Substance: INFLIXIMAB-DYYB
     Dosage: 1100 MG EVERY 7 WEEKS
     Route: 042
     Dates: start: 20200618
  25. INFLECTRA [Suspect]
     Active Substance: INFLIXIMAB-DYYB
     Dosage: 1100 MG EVERY 7 WEEKS
     Route: 042
     Dates: start: 20200806
  26. INFLECTRA [Suspect]
     Active Substance: INFLIXIMAB-DYYB
     Dosage: 1100 MG
     Route: 042
     Dates: start: 20200319, end: 20200806
  27. INFLECTRA [Suspect]
     Active Substance: INFLIXIMAB-DYYB
     Dosage: 1100 MG EVERY 6 WEEKS
     Route: 042
     Dates: start: 20200918
  28. INFLECTRA [Suspect]
     Active Substance: INFLIXIMAB-DYYB
     Dosage: 1100 MG EVERY 6 WEEKS
     Route: 042
     Dates: start: 20210121
  29. INFLECTRA [Suspect]
     Active Substance: INFLIXIMAB-DYYB
     Dosage: 1100 MG EVERY 6 WEEKS
     Route: 042
     Dates: start: 20210121
  30. INFLECTRA [Suspect]
     Active Substance: INFLIXIMAB-DYYB
     Dosage: 1100 MG EVERY 6 WEEKS
     Route: 042
     Dates: start: 20210304
  31. INFLECTRA [Suspect]
     Active Substance: INFLIXIMAB-DYYB
     Dosage: 1100 MG EVERY 6 WEEKS
     Route: 042
     Dates: start: 20210415
  32. INFLECTRA [Suspect]
     Active Substance: INFLIXIMAB-DYYB
     Dosage: 1100 MG EVERY 6 WEEKS
     Route: 042
     Dates: start: 20210527
  33. INFLECTRA [Suspect]
     Active Substance: INFLIXIMAB-DYYB
     Dosage: 1100 MG EVERY 6 WEEKS
     Route: 042
     Dates: start: 20210710
  34. INFLECTRA [Suspect]
     Active Substance: INFLIXIMAB-DYYB
     Dosage: 1100 MG EVERY 6 WEEKS
     Route: 042
     Dates: start: 20210819
  35. INFLECTRA [Suspect]
     Active Substance: INFLIXIMAB-DYYB
     Dosage: 1100 MG EVERY 6 WEEKS
     Route: 042
     Dates: start: 20220204
  36. INFLECTRA [Suspect]
     Active Substance: INFLIXIMAB-DYYB
     Dosage: 1100 MG EVERY 6 WEEKS
     Route: 042
     Dates: start: 20220404
  37. INFLECTRA [Suspect]
     Active Substance: INFLIXIMAB-DYYB
     Dosage: 1100 MG EVERY 6 WEEKS
     Route: 042
     Dates: start: 20220516
  38. INFLECTRA [Suspect]
     Active Substance: INFLIXIMAB-DYYB
     Dosage: 1100 MG EVERY 6 WEEKS
     Route: 042
     Dates: start: 20220921
  39. INFLECTRA [Suspect]
     Active Substance: INFLIXIMAB-DYYB
     Dosage: 1100 MG EVERY 6 WEEKS
     Route: 042
     Dates: start: 20221101
  40. INFLECTRA [Suspect]
     Active Substance: INFLIXIMAB-DYYB
     Dosage: 1100 MG EVERY 6 WEEKS
     Route: 042
     Dates: start: 20221213
  41. INFLECTRA [Suspect]
     Active Substance: INFLIXIMAB-DYYB
     Dosage: 1100 MG EVERY 6 WEEKS
     Route: 042
     Dates: start: 20230126
  42. IMURAN [Concomitant]
     Active Substance: AZATHIOPRINE
     Dosage: 50 MG, 1X/DAY
     Route: 065
     Dates: start: 20170101
  43. IMURAN [Concomitant]
     Active Substance: AZATHIOPRINE
     Dosage: DOSAGE WAS THEN DECREASED TO 4 TABS FROM 5 TABS
  44. PREDNISONE [Concomitant]
     Active Substance: PREDNISONE
     Dosage: 5 MG, 1X/DAY
     Route: 065
     Dates: start: 20170401
  45. METHYLCOBALAMIN [Concomitant]
     Active Substance: METHYLCOBALAMIN
     Dosage: 1 DF, 1X/DAY (DOSAGE NOT AVAILABLE)
     Route: 065

REACTIONS (13)
  - Condition aggravated [Not Recovered/Not Resolved]
  - Heart rate decreased [Unknown]
  - Injection site extravasation [Recovered/Resolved]
  - Mouth ulceration [Unknown]
  - Macrocytosis [Unknown]
  - Poor venous access [Unknown]
  - Psoriasis [Unknown]
  - Urticaria [Not Recovered/Not Resolved]
  - White blood cell count decreased [Unknown]
  - Nasopharyngitis [Recovered/Resolved]
  - Off label use [Unknown]
  - Off label use [Unknown]
  - Product use issue [Unknown]

NARRATIVE: CASE EVENT DATE: 20170101
